FAERS Safety Report 23368205 (Version 1)
Quarter: 2024Q1

REPORT INFORMATION
  Report Type: Spontaneous
  Country: US (occurrence: US)
  Receive Date: 20240105
  Receipt Date: 20240105
  Transmission Date: 20240410
  Serious: Yes (Hospitalization, Other)
  Sender: FDA-Public Use
  Company Number: US-BRISTOL-MYERS SQUIBB COMPANY-2024-000815

PATIENT
  Age: 75 Year
  Sex: Male
  Weight: 98.43 kg

DRUGS (1)
  1. REVLIMID [Suspect]
     Active Substance: LENALIDOMIDE
     Indication: Plasma cell myeloma
     Dosage: 21D OF 28DAYS
     Route: 048
     Dates: start: 20231001

REACTIONS (3)
  - Acute respiratory failure [Unknown]
  - Renal disorder [Unknown]
  - Atrial fibrillation [Unknown]
